FAERS Safety Report 12209838 (Version 2)
Quarter: 2016Q2

REPORT INFORMATION
  Report Type: Spontaneous
  Country: US (occurrence: US)
  Receive Date: 20160325
  Receipt Date: 20160504
  Transmission Date: 20160815
  Serious: Yes (Hospitalization, Other)
  Sender: FDA-Public Use
  Company Number: US-009507513-1603USA009893

PATIENT
  Age: 19 Year
  Sex: Female
  Weight: 47.17 kg

DRUGS (11)
  1. SUTENT [Suspect]
     Active Substance: SUNITINIB MALATE
     Dosage: DAILY, 2 WEEKS ON/2 WEEKS OFF
     Dates: start: 2016
  2. KEYTRUDA [Suspect]
     Active Substance: PEMBROLIZUMAB
     Dosage: WEEKLY; 2 WEEKS ON/2 WEEKS OFF
     Route: 042
     Dates: start: 2016
  3. FENTANYL. [Concomitant]
     Active Substance: FENTANYL
     Dosage: UNK
  4. KEYTRUDA [Suspect]
     Active Substance: PEMBROLIZUMAB
     Indication: METASTATIC RENAL CELL CARCINOMA
     Dosage: UNK
  5. CARBOPLATIN. [Suspect]
     Active Substance: CARBOPLATIN
     Indication: METASTATIC RENAL CELL CARCINOMA
     Dosage: UNK
  6. REGLAN [Concomitant]
     Active Substance: METOCLOPRAMIDE HYDROCHLORIDE
     Dosage: UNK
  7. MILK OF MAGNESIA [Concomitant]
     Active Substance: MAGNESIUM HYDROXIDE
     Dosage: UNK
  8. TAXOL [Suspect]
     Active Substance: PACLITAXEL
     Indication: METASTATIC RENAL CELL CARCINOMA
     Dosage: UNK
  9. XGEVA [Concomitant]
     Active Substance: DENOSUMAB
     Dosage: UNK
  10. SUTENT [Suspect]
     Active Substance: SUNITINIB MALATE
     Indication: METASTATIC RENAL CELL CARCINOMA
     Dosage: 37.5 MG, DAILY, 2 WEEKS ON/1 WEEK OFF
     Dates: start: 20160218, end: 2016
  11. FENTORA [Concomitant]
     Active Substance: FENTANYL CITRATE
     Dosage: UNK

REACTIONS (14)
  - Pain [Unknown]
  - Weight increased [Unknown]
  - Blister [Unknown]
  - Localised intraabdominal fluid collection [Unknown]
  - Therapeutic response decreased [Unknown]
  - Sleep disorder [Unknown]
  - Pyrexia [Unknown]
  - Intestinal obstruction [Unknown]
  - Inappropriate schedule of drug administration [Unknown]
  - Abdominal distension [Not Recovered/Not Resolved]
  - Dysgeusia [Unknown]
  - Product use issue [Unknown]
  - Malignant neoplasm progression [Unknown]
  - Lymphadenopathy [Unknown]

NARRATIVE: CASE EVENT DATE: 2016
